FAERS Safety Report 5594824-5 (Version None)
Quarter: 2007Q4

REPORT INFORMATION
  Report Type: 
  Country: None (occurrence: None)
  Receive Date: 20071218
  Receipt Date: 20070503
  Transmission Date: 20080405
  Serious: Yes (Hospitalization, Other)
  Sender: FDA-Public Use
  Company Number: 2006119034

PATIENT
  Age: 65 Year
  Sex: Female
  Weight: 54.4 kg

DRUGS (1)
  1. BEXTRA [Suspect]
     Indication: RHEUMATOID ARTHRITIS
     Dosage: (1 IN 1 D),ORAL
     Route: 048
     Dates: start: 20030107, end: 20041016

REACTIONS (3)
  - MYOCARDIAL INFARCTION [None]
  - PANCREATITIS [None]
  - RENAL FAILURE [None]
